FAERS Safety Report 10564634 (Version 1)
Quarter: 2014Q4

REPORT INFORMATION
  Report Type: Spontaneous
  Country: US (occurrence: US)
  Receive Date: 20141104
  Receipt Date: 20141104
  Transmission Date: 20150529
  Serious: Yes (Other)
  Sender: FDA-Public Use
  Company Number: US-ASTRAZENECA-2014SE81433

PATIENT
  Sex: Male
  Weight: 79.4 kg

DRUGS (22)
  1. CHONDROITIN [Concomitant]
     Active Substance: CHONDROITIN
     Indication: MOBILITY DECREASED
     Route: 048
  2. BURBOCK ROOT [Concomitant]
     Indication: CARDIAC DISORDER
  3. HIGHLANDER^^^^S PILL FOR CRAMPS [Concomitant]
     Indication: MUSCLE SPASMS
  4. GLUCOSAMINE [Concomitant]
     Active Substance: GLUCOSAMINE
     Indication: MOBILITY DECREASED
     Route: 048
  5. GARLIC. [Concomitant]
     Active Substance: GARLIC
     Indication: HYPERTENSION
     Route: 048
  6. HAWTHORNE EXTRACT [Concomitant]
     Indication: BLOOD PRESSURE ABNORMAL
     Dosage: 150
  7. CRESTOR [Suspect]
     Active Substance: ROSUVASTATIN CALCIUM
     Indication: BLOOD CHOLESTEROL ABNORMAL
     Route: 048
  8. VITIMIN K [Concomitant]
     Route: 048
  9. GRRAPE SEED [Concomitant]
     Indication: BLOOD PRESSURE ABNORMAL
  10. HOPPS VALERIAN COMPLETX [Concomitant]
  11. NIACIN. [Interacting]
     Active Substance: NIACIN
     Indication: BLOOD PRESSURE ABNORMAL
     Route: 065
  12. VITAMIN B12 [Concomitant]
     Active Substance: CYANOCOBALAMIN
  13. GINGER ROOT [Concomitant]
     Indication: BLOOD PRESSURE ABNORMAL
  14. COQ10 [Concomitant]
     Active Substance: UBIDECARENONE
     Route: 048
  15. VIT D 3 [Concomitant]
  16. FISH OIL [Concomitant]
     Active Substance: FISH OIL
  17. GINKO BILOBA [Concomitant]
     Indication: MEMORY IMPAIRMENT
  18. VITAMIN C [Concomitant]
     Active Substance: ASCORBIC ACID
  19. MONOMAGNESIUM MALATE [Concomitant]
     Indication: MUSCLE SPASMS
     Route: 048
  20. MAGNESIUM [Concomitant]
     Active Substance: MAGNESIUM
     Route: 048
  21. BLACK SHERRRY [Concomitant]
     Dosage: 1000
  22. AMIOSH FORMULA STOP CRAMS [Concomitant]

REACTIONS (3)
  - Drug interaction [Unknown]
  - Muscle disorder [Recovering/Resolving]
  - Gait disturbance [Recovering/Resolving]
